FAERS Safety Report 9752513 (Version 1)
Quarter: 2013Q4

REPORT INFORMATION
  Report Type: Spontaneous
  Country: FR (occurrence: FR)
  Receive Date: 20131213
  Receipt Date: 20131213
  Transmission Date: 20140711
  Serious: Yes (Death, Hospitalization)
  Sender: FDA-Public Use
  Company Number: FR-JNJFOC-20131206516

PATIENT
  Age: 65 Year
  Sex: Male

DRUGS (2)
  1. DORIBAX [Suspect]
     Indication: PRODUCT USED FOR UNKNOWN INDICATION
     Route: 042
     Dates: start: 20130830, end: 20130902
  2. HEPARIN SODIUM [Suspect]
     Indication: PRODUCT USED FOR UNKNOWN INDICATION
     Route: 042
     Dates: start: 20130824, end: 20130902

REACTIONS (2)
  - Death [Fatal]
  - Thrombocytopenia [Recovered/Resolved]
